FAERS Safety Report 11866934 (Version 3)
Quarter: 2016Q1

REPORT INFORMATION
  Report Type: Spontaneous
  Country: US (occurrence: US)
  Receive Date: 20151224
  Receipt Date: 20160205
  Transmission Date: 20160526
  Serious: Yes (Hospitalization)
  Sender: FDA-Public Use
  Company Number: US-UNITED THERAPEUTICS-UNT-2015-012199

PATIENT
  Age: 53 Year
  Sex: Male
  Weight: 92.63 kg

DRUGS (7)
  1. TYVASO [Suspect]
     Active Substance: TREPROSTINIL
     Indication: PULMONARY HYPERTENSION
     Dosage: 18-54 ?G, QID
     Dates: start: 20150917
  2. TYVASO [Suspect]
     Active Substance: TREPROSTINIL
     Dosage: UNK
  3. TYVASO [Suspect]
     Active Substance: TREPROSTINIL
     Dosage: UNK
  4. TYVASO [Suspect]
     Active Substance: TREPROSTINIL
     Dosage: UNK
  5. TYVASO [Suspect]
     Active Substance: TREPROSTINIL
     Dosage: UNK
  6. TYVASO [Suspect]
     Active Substance: TREPROSTINIL
     Dosage: UNK
  7. TYVASO [Suspect]
     Active Substance: TREPROSTINIL
     Dosage: UNK

REACTIONS (11)
  - Colitis [Unknown]
  - Headache [Recovered/Resolved]
  - Neuropathy peripheral [Not Recovered/Not Resolved]
  - Dysphonia [Unknown]
  - Flushing [Unknown]
  - Gastrooesophageal reflux disease [Unknown]
  - Sinusitis [Unknown]
  - Platelet count decreased [Unknown]
  - Nausea [Unknown]
  - Laryngitis [Unknown]
  - Oropharyngeal pain [Unknown]

NARRATIVE: CASE EVENT DATE: 2015
